FAERS Safety Report 9937391 (Version 1)
Quarter: 2014Q1

REPORT INFORMATION
  Report Type: Report from Study
  Country: ID (occurrence: ID)
  Receive Date: 20140303
  Receipt Date: 20140303
  Transmission Date: 20141002
  Serious: Yes (Death)
  Sender: FDA-Public Use
  Company Number: ID-ROCHE-1352295

PATIENT
  Sex: 0

DRUGS (1)
  1. BONDRONAT [Suspect]
     Indication: METASTASES TO BONE
     Route: 065

REACTIONS (3)
  - Metastases to lung [Fatal]
  - Pyrexia [Unknown]
  - Chills [Unknown]
